FAERS Safety Report 11392383 (Version 1)
Quarter: 2015Q3

REPORT INFORMATION
  Report Type: Spontaneous
  Country: GB (occurrence: GB)
  Receive Date: 20150818
  Receipt Date: 20150818
  Transmission Date: 20151125
  Serious: Yes (Life-Threatening)
  Sender: FDA-Public Use
  Company Number: GB-FRESENIUS KABI-FK201503865

PATIENT
  Age: 31 Year
  Sex: Male

DRUGS (5)
  1. CLONIDINE HYDROCHLORIDE INJECTION (MANUFACTURER UNKNOWN) (CLONIDINE HYDROCHLORIDE) (CLONIDINE HYDROCHLORIDE) [Suspect]
     Active Substance: CLONIDINE HYDROCHLORIDE
     Route: 065
  2. CLONIDINE HYDROCHLORIDE INJECTION (MANUFACTURER UNKNOWN) (CLONIDINE HYDROCHLORIDE) (CLONIDINE HYDROCHLORIDE) [Suspect]
     Active Substance: CLONIDINE HYDROCHLORIDE
     Route: 048
  3. PROPOFOL. [Concomitant]
     Active Substance: PROPOFOL
     Indication: SEDATION
     Route: 065
  4. ALFENTANIL. [Concomitant]
     Active Substance: ALFENTANIL
     Indication: SEDATION
     Route: 065
  5. CLONIDINE HYDROCHLORIDE INJECTION (MANUFACTURER UNKNOWN) (CLONIDINE HYDROCHLORIDE) (CLONIDINE HYDROCHLORIDE) [Suspect]
     Active Substance: CLONIDINE HYDROCHLORIDE
     Indication: WITHDRAWAL SYNDROME
     Route: 065

REACTIONS (4)
  - Acute pulmonary oedema [Recovered/Resolved]
  - Product use issue [Recovered/Resolved]
  - Drug withdrawal syndrome [Recovered/Resolved]
  - Respiratory failure [Recovered/Resolved]
